FAERS Safety Report 23878397 (Version 1)
Quarter: 2024Q2

REPORT INFORMATION
  Report Type: Spontaneous
  Country: FR (occurrence: FR)
  Receive Date: 20240521
  Receipt Date: 20240521
  Transmission Date: 20240716
  Serious: Yes (Other)
  Sender: FDA-Public Use
  Company Number: FR-ASPEN-GLO2024FR002920

PATIENT
  Sex: Female
  Weight: 1 kg

DRUGS (7)
  1. PREDNISONE [Suspect]
     Active Substance: PREDNISONE
     Indication: Haemodialysis
     Dosage: 5 MILLIGRAM
     Route: 064
  2. FOLIC ACID [Suspect]
     Active Substance: FOLIC ACID
     Indication: Haemodialysis
     Dosage: 5 MILLIGRAM, QD
     Route: 064
  3. LABETALOL [Suspect]
     Active Substance: LABETALOL\LABETALOL HYDROCHLORIDE
     Indication: Hypertension
     Dosage: 200 MILLIGRAM, QD, 100 MG, 2 DOSE DAILY
     Route: 064
  4. ASPIRIN [Suspect]
     Active Substance: ASPIRIN
     Indication: Haemodialysis
     Dosage: 160 MILLIGRAM, QD
     Route: 064
  5. VITAMINS [Suspect]
     Active Substance: VITAMINS
     Indication: Haemodialysis
     Dosage: UNK
     Route: 064
  6. LEVOTHYROXINE [Suspect]
     Active Substance: LEVOTHYROXINE\LEVOTHYROXINE SODIUM
     Indication: Haemodialysis
     Dosage: UNK
     Route: 064
  7. NICARDIPINE [Suspect]
     Active Substance: NICARDIPINE
     Indication: Haemodialysis
     Dosage: 50 MILLIGRAM, TID, (MORNING, MIDDAY AND EVENING)
     Route: 064

REACTIONS (3)
  - Premature baby [Unknown]
  - Retinopathy [Unknown]
  - Foetal exposure during pregnancy [Unknown]
